FAERS Safety Report 6800897-1 (Version None)
Quarter: 2010Q2

REPORT INFORMATION
  Report Type: 
  Country: None (occurrence: None)
  Receive Date: 20100629
  Receipt Date: 20100616
  Transmission Date: 20101027
  Serious: Yes (Other)
  Sender: FDA-Public Use
  Company Number: PHHY2010US39594

PATIENT
  Sex: Female

DRUGS (2)
  1. VIVELLE-DOT [Suspect]
     Dosage: UNK
     Route: 062
  2. PROGESTERONE [Concomitant]
     Dosage: UNK

REACTIONS (3)
  - ANXIETY [None]
  - FEELING JITTERY [None]
  - HYPERTHYROIDISM [None]
